FAERS Safety Report 13158227 (Version 1)
Quarter: 2017Q1

REPORT INFORMATION
  Report Type: Spontaneous
  Country: US (occurrence: US)
  Receive Date: 20170126
  Receipt Date: 20170126
  Transmission Date: 20170428
  Serious: No
  Sender: FDA-Public Use
  Company Number: None

PATIENT
  Age: 57 Year
  Sex: Female

DRUGS (1)
  1. ARMOUR THYROID [Suspect]
     Active Substance: THYROID, PORCINE
     Indication: HYPOTHYROIDISM
     Dosage: 90MG OR 1.5 GRAIN QD ORAL
     Route: 048

REACTIONS (5)
  - Weight increased [None]
  - Product odour abnormal [None]
  - Muscle spasms [None]
  - Blood thyroid stimulating hormone decreased [None]
  - Pain [None]

NARRATIVE: CASE EVENT DATE: 20170122
